FAERS Safety Report 5669457-2 (Version None)
Quarter: 2008Q1

REPORT INFORMATION
  Report Type: 
  Country: None (occurrence: None)
  Receive Date: 20080317
  Receipt Date: 20080314
  Transmission Date: 20080703
  Serious: Yes (Death)
  Sender: FDA-Public Use
  Company Number: B0512324A

PATIENT
  Age: 80 Year
  Sex: Female

DRUGS (1)
  1. ZOVIRAX [Suspect]
     Indication: HERPES ZOSTER
     Route: 042
     Dates: start: 20080129, end: 20080202

REACTIONS (4)
  - INJECTION SITE EXTRAVASATION [None]
  - NECROSIS [None]
  - PERIPHERAL VASCULAR DISORDER [None]
  - RESPIRATORY FAILURE [None]
